FAERS Safety Report 5583070-7 (Version None)
Quarter: 2008Q1

REPORT INFORMATION
  Report Type: 
  Country: None (occurrence: None)
  Receive Date: 20080107
  Receipt Date: 20080103
  Transmission Date: 20080703
  Serious: Yes (Other)
  Sender: FDA-Public Use
  Company Number: B0501432A

PATIENT
  Sex: Male

DRUGS (2)
  1. ADARTREL [Suspect]
     Indication: PARKINSON'S DISEASE
     Dosage: 2MG PER DAY
     Route: 048
  2. REQUIP [Concomitant]
     Indication: PARKINSON'S DISEASE
     Dosage: 2MG PER DAY
     Route: 048

REACTIONS (2)
  - OFF LABEL USE [None]
  - PARKINSON'S DISEASE [None]
